FAERS Safety Report 10694799 (Version 1)
Quarter: 2015Q1

REPORT INFORMATION
  Report Type: Spontaneous
  Country: US (occurrence: None)
  Receive Date: 20150105
  Receipt Date: 20150105
  Transmission Date: 20150721
  Serious: Yes (Disabling)
  Sender: FDA-Public Use
  Company Number: None

PATIENT
  Age: 58 Year
  Sex: Male

DRUGS (8)
  1. LIPITOR [Concomitant]
     Active Substance: ATORVASTATIN CALCIUM
  2. 1-A-DAY VITAMINS [Concomitant]
  3. NIACIN. [Concomitant]
     Active Substance: NIACIN
  4. GLIMEPIRIDE. [Concomitant]
     Active Substance: GLIMEPIRIDE
  5. INVOKANA [Suspect]
     Active Substance: CANAGLIFLOZIN
     Indication: DIABETES MELLITUS
     Dosage: 1 PILL PER DAY
     Route: 048
     Dates: start: 201402, end: 201405
  6. LISINO/HCTZ [Concomitant]
  7. POTASSIUM [Concomitant]
     Active Substance: POTASSIUM
  8. CINNAMON CAPS [Concomitant]

REACTIONS (3)
  - Blood cholesterol increased [None]
  - Renal disorder [None]
  - Blood glucose increased [None]

NARRATIVE: CASE EVENT DATE: 201402
